FAERS Safety Report 5043225-7 (Version None)
Quarter: 2006Q3

REPORT INFORMATION
  Report Type: 
  Country: None (occurrence: None)
  Receive Date: 20060705
  Receipt Date: 20060623
  Transmission Date: 20061208
  Serious: Yes (Hospitalization)
  Sender: FDA-Public Use
  Company Number: DE-BRISTOL-MYERS SQUIBB COMPANY-13431481

PATIENT
  Age: 66 Year
  Sex: Male

DRUGS (10)
  1. ERBITUX [Suspect]
     Indication: PANCREATIC CARCINOMA METASTATIC
     Route: 042
     Dates: start: 20050727
  2. OXALIPLATIN [Suspect]
     Indication: PANCREATIC CARCINOMA METASTATIC
     Route: 042
  3. GEMCITABINE [Suspect]
     Indication: PANCREATIC CARCINOMA METASTATIC
     Route: 042
  4. DEXAMETHASONE TAB [Suspect]
     Route: 042
     Dates: start: 20050727
  5. ATENOLOL [Concomitant]
  6. DELIX PLUS [Concomitant]
  7. PANTOZOL [Concomitant]
  8. NOVALGIN [Concomitant]
  9. PASPERTIN [Concomitant]
  10. DURAGESIC-100 [Concomitant]

REACTIONS (1)
  - HYPERTENSIVE CRISIS [None]
